FAERS Safety Report 9076050 (Version 1)
Quarter: 2013Q1

REPORT INFORMATION
  Report Type: Spontaneous
  Country: US (occurrence: US)
  Receive Date: 20130129
  Receipt Date: 20130129
  Transmission Date: 20140127
  Serious: Yes (Other)
  Sender: FDA-Public Use
  Company Number: CHPA2013US001605

PATIENT
  Sex: Female

DRUGS (2)
  1. THERAFLU VAPOR PATCH [Suspect]
     Indication: BRONCHITIS
     Dosage: 1 PATCH PER DAY
     Route: 062
  2. ANTIHYPERTENSIVES [Concomitant]
     Indication: HYPERTENSION

REACTIONS (6)
  - Diabetes mellitus [Unknown]
  - Bronchitis [Unknown]
  - Nasopharyngitis [Unknown]
  - Aphonia [Unknown]
  - Off label use [Unknown]
  - Therapeutic response unexpected [Unknown]
